FAERS Safety Report 9896724 (Version 1)
Quarter: 2014Q1

REPORT INFORMATION
  Report Type: Spontaneous
  Country: US (occurrence: US)
  Receive Date: 20140213
  Receipt Date: 20140213
  Transmission Date: 20141002
  Serious: No
  Sender: FDA-Public Use
  Company Number: US-BRISTOL-MYERS SQUIBB COMPANY-19166875

PATIENT
  Age: 40 Year
  Sex: Female
  Weight: 76.19 kg

DRUGS (4)
  1. ABATACEPT SUBQ INJECTION 125MG/ML [Suspect]
     Route: 058
  2. BENADRYL [Concomitant]
  3. CHLORZOXAZONE [Concomitant]
     Indication: MUSCLE RELAXANT THERAPY
  4. PREDNISONE [Concomitant]

REACTIONS (3)
  - Dizziness [Unknown]
  - Back pain [Unknown]
  - Arthralgia [Unknown]
